FAERS Safety Report 14797045 (Version 2)
Quarter: 2019Q2

REPORT INFORMATION
  Report Type: Report from Study
  Country: US (occurrence: US)
  Receive Date: 20180423
  Receipt Date: 20190624
  Transmission Date: 20190711
  Serious: Yes (Other)
  Sender: FDA-Public Use
  Company Number: US-SA-2017SA174067

PATIENT
  Age: 62 Year
  Sex: Female

DRUGS (1)
  1. ENOXAPARIN SODIUM. [Suspect]
     Active Substance: ENOXAPARIN SODIUM
     Indication: THROMBOSIS
     Dosage: 60 MG, BID
     Route: 065

REACTIONS (10)
  - Weight increased [Unknown]
  - Pain [Unknown]
  - Product use issue [Unknown]
  - Peripheral swelling [Unknown]
  - Feeling abnormal [Unknown]
  - Product dose omission [Unknown]
  - Headache [Unknown]
  - Stress [Unknown]
  - Product quality issue [Unknown]
  - Thrombosis [Unknown]

NARRATIVE: CASE EVENT DATE: 20180310
